FAERS Safety Report 8904085 (Version 4)
Quarter: 2013Q1

REPORT INFORMATION
  Report Type: Report from Study
  Country: US (occurrence: US)
  Receive Date: 20121112
  Receipt Date: 20130314
  Transmission Date: 20140127
  Serious: Yes (Hospitalization, Other)
  Sender: FDA-Public Use
  Company Number: US-PFIZER INC-2012277651

PATIENT
  Age: 6 Year
  Sex: Male

DRUGS (12)
  1. CYTARABINE [Suspect]
     Indication: ACUTE LYMPHOCYTIC LEUKAEMIA
     Dosage: 75 MG/SQ.METTER 1/1X/DAY
     Dates: start: 20121219, end: 20121222
  2. METHOTREXATE SODIUM [Suspect]
     Indication: ACUTE LYMPHOCYTIC LEUKAEMIA
     Dosage: UNK
  3. DASATINIB [Suspect]
     Indication: ACUTE LYMPHOCYTIC LEUKAEMIA
     Dosage: 55 MG, 1X/DAY
     Route: 048
     Dates: start: 20120427
  4. DASATINIB [Suspect]
     Dosage: 55 MG, 1X/DAY
     Route: 048
     Dates: start: 20120828, end: 20120829
  5. DASATINIB [Suspect]
     Dosage: UNK
     Dates: end: 20130107
  6. DASATINIB [Suspect]
     Dosage: UNK
     Dates: end: 20130118
  7. DASATINIB [Suspect]
     Dosage: UNK
     Dates: start: 20130121
  8. MERCAPTOPURINE [Suspect]
     Indication: ACUTE LYMPHOCYTIC LEUKAEMIA
     Dosage: UNK
  9. THIOGUANINE [Suspect]
     Indication: ACUTE LYMPHOCYTIC LEUKAEMIA
     Dosage: DOSE: 100 MILLIGRAM FROM MONDAY TO THURSDAY AND 40 MG FRIDAY TO SUNDAY
     Dates: start: 20121210, end: 20121224
  10. BACTRIM [Concomitant]
     Dosage: UNK
     Dates: start: 20120421
  11. LORAZEPAM [Concomitant]
     Dosage: 4 MG, AS NEEDED
     Route: 042
     Dates: start: 20120928, end: 20120928
  12. FILGRASTIM [Concomitant]
     Dosage: UNK
     Dates: start: 20120924

REACTIONS (7)
  - Febrile neutropenia [Recovered/Resolved]
  - Device related infection [Unknown]
  - Pyrexia [Recovered/Resolved]
  - Vomiting [Recovering/Resolving]
  - Pyrexia [Recovered/Resolved]
  - Upper respiratory tract infection [Unknown]
  - Cough [Unknown]
